FAERS Safety Report 10238487 (Version 1)
Quarter: 2014Q2

REPORT INFORMATION
  Report Type: Spontaneous
  Country: US (occurrence: US)
  Receive Date: 20140616
  Receipt Date: 20140616
  Transmission Date: 20141212
  Serious: No
  Sender: FDA-Public Use
  Company Number: US-009507513-1406USA007851

PATIENT
  Age: 70 Year
  Sex: Female
  Weight: 108.84 kg

DRUGS (4)
  1. OXYTROL FOR WOMEN [Suspect]
     Indication: MICTURITION URGENCY
     Dosage: UNK, UNKNOWN
     Route: 062
     Dates: start: 20140401, end: 20140505
  2. OXYTROL FOR WOMEN [Suspect]
     Indication: POLLAKIURIA
  3. METFORMIN [Concomitant]
     Indication: DIABETES MELLITUS
     Dosage: 750 MG, UNKNOWN
  4. VYTORIN [Concomitant]
     Indication: BLOOD CHOLESTEROL INCREASED
     Dosage: UNK, UNKNOWN

REACTIONS (2)
  - Off label use [Unknown]
  - Product adhesion issue [Unknown]
